FAERS Safety Report 9558231 (Version 1)
Quarter: 2013Q3

REPORT INFORMATION
  Report Type: Spontaneous
  Country: BE (occurrence: BE)
  Receive Date: 20130926
  Receipt Date: 20130926
  Transmission Date: 20140515
  Serious: Yes (Death, Life-Threatening, Hospitalization, Disabling, Other)
  Sender: FDA-Public Use
  Company Number: BE-ELI_LILLY_AND_COMPANY-BE201309007204

PATIENT
  Age: 52 Year
  Sex: Male

DRUGS (2)
  1. EFIENT [Suspect]
     Indication: THROMBOSIS PROPHYLAXIS
  2. BRILIQUE [Suspect]
     Indication: THROMBOSIS PROPHYLAXIS
     Dosage: 90 MG, BID

REACTIONS (1)
  - Haemorrhagic stroke [Fatal]
